FAERS Safety Report 24161013 (Version 1)
Quarter: 2024Q3

REPORT INFORMATION
  Report Type: Report from Study
  Country: US (occurrence: None)
  Receive Date: 20240801
  Receipt Date: 20240801
  Transmission Date: 20241016
  Serious: Yes (Other)
  Sender: ASTRAZENECA
  Company Number: 2022A200700

PATIENT
  Sex: Female
  Weight: 61.2 kg

DRUGS (19)
  1. LYNPARZA [Suspect]
     Active Substance: OLAPARIB
     Indication: Malignant peritoneal neoplasm
     Route: 048
     Dates: start: 20211001, end: 20220525
  2. VENLAFAXINE HCL [Concomitant]
     Active Substance: VENLAFAXINE HYDROCHLORIDE
  3. ADVAIR DISKUS [Concomitant]
     Active Substance: FLUTICASONE PROPIONATE\SALMETEROL XINAFOATE
  4. ATIVAN [Concomitant]
     Active Substance: LORAZEPAM
  5. PEPCID [Concomitant]
     Active Substance: FAMOTIDINE
  6. IBUPROFEN [Concomitant]
     Active Substance: IBUPROFEN
  7. POTASSIUM [Concomitant]
     Active Substance: POTASSIUM
  8. MIRALAX [Concomitant]
     Active Substance: POLYETHYLENE GLYCOL 3350
  9. COLLAGEN [Concomitant]
     Active Substance: COLLAGEN
  10. CALCIUM\CHOLECALCIFEROL [Concomitant]
     Active Substance: CALCIUM\CHOLECALCIFEROL
  11. CARISOPRODOL [Concomitant]
     Active Substance: CARISOPRODOL
  12. AVASTIN [Concomitant]
     Active Substance: BEVACIZUMAB
  13. MINERALS\VITAMINS [Concomitant]
     Active Substance: MINERALS\VITAMINS
  14. GABAPENTIN [Concomitant]
     Active Substance: GABAPENTIN
  15. ONDANSETRON HYDROCHLORIDE [Concomitant]
     Active Substance: ONDANSETRON HYDROCHLORIDE
  16. BENADRYL [Concomitant]
     Active Substance: DIPHENHYDRAMINE HYDROCHLORIDE
  17. OMEPRAZOLE [Concomitant]
     Active Substance: OMEPRAZOLE
  18. PROAIR HFA [Concomitant]
     Active Substance: ALBUTEROL SULFATE
  19. MARIJUANA LIQUID [Concomitant]

REACTIONS (3)
  - Cardiac failure [Unknown]
  - Myocardial infarction [Unknown]
  - Dyspnoea [Unknown]
